FAERS Safety Report 20819199 (Version 2)
Quarter: 2022Q3

REPORT INFORMATION
  Report Type: Report from Study
  Country: US (occurrence: US)
  Receive Date: 20220512
  Receipt Date: 20220824
  Transmission Date: 20221026
  Serious: Yes (Hospitalization, Other)
  Sender: FDA-Public Use
  Company Number: US-BRISTOL-MYERS SQUIBB COMPANY-2022-032808

PATIENT
  Age: 38 Year
  Sex: Female

DRUGS (1)
  1. ZEPOSIA [Suspect]
     Active Substance: OZANIMOD HYDROCHLORIDE
     Indication: Multiple sclerosis
     Route: 048
     Dates: start: 20210403

REACTIONS (10)
  - COVID-19 [Unknown]
  - Pneumothorax [Unknown]
  - Rash macular [Unknown]
  - Infection [Unknown]
  - Blood pressure decreased [Unknown]
  - Fatigue [Unknown]
  - Memory impairment [Unknown]
  - Hypoaesthesia [Unknown]
  - Peripheral swelling [Unknown]
  - Pain [Unknown]

NARRATIVE: CASE EVENT DATE: 20220201
